FAERS Safety Report 4359236-0 (Version None)
Quarter: 2004Q2

REPORT INFORMATION
  Report Type: 
  Country: None (occurrence: None)
  Receive Date: 20040517
  Receipt Date: 20040517
  Transmission Date: 20050107
  Serious: Yes (Hospitalization)
  Sender: FDA-Public Use
  Company Number: None

PATIENT
  Age: 80 Year
  Sex: Male

DRUGS (7)
  1. NITROGLYCERIN [Suspect]
     Indication: ANGINA PECTORIS
     Dosage: UP TO 5 TABLETS
     Dates: start: 19980129
  2. LEVOFLOXACIN [Concomitant]
  3. IBUPROFEN [Concomitant]
  4. SERTRALINE [Concomitant]
  5. DONEPEZIL HCL [Concomitant]
  6. FOSINOPRIL SODIUM [Concomitant]
  7. METFORMIN HCL [Concomitant]

REACTIONS (1)
  - MENTAL STATUS CHANGES [None]
